FAERS Safety Report 15095805 (Version 4)
Quarter: 2018Q3

REPORT INFORMATION
  Report Type: Spontaneous
  Country: US (occurrence: US)
  Receive Date: 20180702
  Receipt Date: 20180906
  Transmission Date: 20181010
  Serious: Yes (Hospitalization, Other)
  Sender: FDA-Public Use
  Company Number: US-ROCHE-2142642

PATIENT
  Age: 87 Year
  Sex: Female
  Weight: 86.26 kg

DRUGS (4)
  1. AVASTIN [Suspect]
     Active Substance: BEVACIZUMAB
     Indication: MACULAR DEGENERATION
     Dosage: RECEIVED AVASTIN IN RIGHT EYE FOR SIX YEARS ;ONGOING: YES
     Route: 065
  2. PERJETA [Suspect]
     Active Substance: PERTUZUMAB
     Indication: BREAST CANCER
     Route: 065
     Dates: start: 20160524, end: 20170428
  3. HERCEPTIN [Suspect]
     Active Substance: TRASTUZUMAB
     Indication: BREAST CANCER
     Route: 065
     Dates: start: 20160524, end: 20170428
  4. TAXOL [Concomitant]
     Active Substance: PACLITAXEL

REACTIONS (23)
  - Heart valve incompetence [Unknown]
  - Intentional product use issue [Unknown]
  - Blindness [Unknown]
  - Blindness unilateral [Unknown]
  - Eye disorder [Unknown]
  - Panic reaction [Unknown]
  - Diplopia [Recovered/Resolved]
  - Vomiting [Unknown]
  - Hernia [Unknown]
  - Breast abscess [Unknown]
  - Tumour rupture [Unknown]
  - Hallucination [Not Recovered/Not Resolved]
  - Nightmare [Not Recovered/Not Resolved]
  - Breast mass [Unknown]
  - Cough [Unknown]
  - Breast cancer [Unknown]
  - Dyspnoea [Not Recovered/Not Resolved]
  - Diarrhoea [Recovered/Resolved]
  - Renal injury [Not Recovered/Not Resolved]
  - Injury corneal [Unknown]
  - Malaise [Unknown]
  - Dysphemia [Unknown]
  - Off label use [Unknown]

NARRATIVE: CASE EVENT DATE: 20160524
